FAERS Safety Report 11093297 (Version 2)
Quarter: 2015Q2

REPORT INFORMATION
  Report Type: Spontaneous
  Country: HU (occurrence: HU)
  Receive Date: 20150506
  Receipt Date: 20150519
  Transmission Date: 20150821
  Serious: Yes (Other)
  Sender: FDA-Public Use
  Company Number: HU-PFIZER INC-2015114586

PATIENT
  Age: 59 Year
  Sex: Male

DRUGS (13)
  1. XALKORI [Suspect]
     Active Substance: CRIZOTINIB
     Dosage: 250 MG, 2X/DAY (2ND CYCLE)
     Route: 048
     Dates: start: 20140507
  2. XALKORI [Suspect]
     Active Substance: CRIZOTINIB
     Dosage: 250 MG, 2X/DAY (10TH CYCLE)
     Route: 048
     Dates: start: 20150114
  3. XALKORI [Suspect]
     Active Substance: CRIZOTINIB
     Dosage: 250 MG, 2X/DAY (11TH CYCLE)
     Route: 048
     Dates: start: 20150204
  4. XALKORI [Suspect]
     Active Substance: CRIZOTINIB
     Indication: LUNG ADENOCARCINOMA METASTATIC
     Dosage: 250 MG, 2X/DAY (1ST CYCLE)
     Route: 048
     Dates: start: 20140408
  5. XALKORI [Suspect]
     Active Substance: CRIZOTINIB
     Dosage: 250 MG, 2X/DAY (6TH CYCLE)
     Route: 048
     Dates: start: 20140901
  6. XALKORI [Suspect]
     Active Substance: CRIZOTINIB
     Dosage: 250 MG, 2X/DAY (7TH CYCLE)
     Route: 048
     Dates: start: 20141001
  7. XALKORI [Suspect]
     Active Substance: CRIZOTINIB
     Dosage: 250 MG, 2X/DAY (8TH CYCLE)
     Route: 048
     Dates: start: 20141126
  8. XALKORI [Suspect]
     Active Substance: CRIZOTINIB
     Dosage: 250 MG, 2X/DAY (4TH CYCLE)
     Route: 048
     Dates: start: 20140704
  9. XALKORI [Suspect]
     Active Substance: CRIZOTINIB
     Dosage: 250 MG, 2X/DAY (12TH CYCLE)
     Route: 048
     Dates: start: 20150310
  10. JURNISTA BET.M [Concomitant]
     Indication: ANALGESIC THERAPY
     Dosage: 16 MG, DAILY
     Dates: end: 20140606
  11. XALKORI [Suspect]
     Active Substance: CRIZOTINIB
     Dosage: 250 MG, 2X/DAY (3RD CYCLE)
     Route: 048
     Dates: start: 20140606
  12. XALKORI [Suspect]
     Active Substance: CRIZOTINIB
     Dosage: 250 MG, 2X/DAY (5TH CYCLE)
     Route: 048
     Dates: start: 20140804
  13. MEGYRINA [Concomitant]
     Indication: INCREASED APPETITE
     Dosage: 20 ML, DAILY
     Dates: start: 20140408, end: 20140606

REACTIONS (16)
  - Nausea [Not Recovered/Not Resolved]
  - Dysgeusia [Recovered/Resolved]
  - Visual impairment [Not Recovered/Not Resolved]
  - Diarrhoea [Recovered/Resolved]
  - Lung adenocarcinoma metastatic [Unknown]
  - Aspartate aminotransferase increased [Recovered/Resolved]
  - Fatigue [Recovered/Resolved]
  - Disease progression [Unknown]
  - Oedema peripheral [Recovered/Resolved]
  - Peripheral swelling [Not Recovered/Not Resolved]
  - Increased appetite [Not Recovered/Not Resolved]
  - Weight increased [Not Recovered/Not Resolved]
  - Retching [Not Recovered/Not Resolved]
  - Alanine aminotransferase increased [Recovered/Resolved]
  - Cough [Recovered/Resolved]
  - Oedema peripheral [Recovered/Resolved]

NARRATIVE: CASE EVENT DATE: 20140417
